FAERS Safety Report 18199842 (Version 2)
Quarter: 2020Q3

REPORT INFORMATION
  Report Type: Spontaneous
  Country: FR (occurrence: FR)
  Receive Date: 20200826
  Receipt Date: 20200929
  Transmission Date: 20201103
  Serious: Yes (Hospitalization)
  Sender: FDA-Public Use
  Company Number: FR-MYLANLABS-2020M1073723

PATIENT
  Age: 51 Year
  Sex: Female

DRUGS (24)
  1. X PREP                             /00142208/ [Concomitant]
     Active Substance: SENNA LEAF
     Dosage: UNK
     Dates: start: 20200408, end: 20200409
  2. DEPO?MEDROL [Concomitant]
     Active Substance: METHYLPREDNISOLONE ACETATE
     Indication: ACUTE MYELOID LEUKAEMIA
     Dosage: 40 MILLIGRAM
     Route: 037
     Dates: start: 20200421
  3. GENTAMICINE                        /00047101/ [Concomitant]
     Active Substance: GENTAMICIN
     Dosage: UNK
     Dates: start: 20200412, end: 20200413
  4. HERCEPTIN [Concomitant]
     Active Substance: TRASTUZUMAB
     Dosage: UNK
     Route: 042
     Dates: start: 2017, end: 2018
  5. EPIRUBICINE [Concomitant]
     Active Substance: EPIRUBICIN
     Dosage: UNK
     Route: 042
     Dates: start: 201612, end: 201702
  6. CEFEPIME [Concomitant]
     Active Substance: CEFEPIME HYDROCHLORIDE
     Dosage: UNK
     Route: 042
     Dates: start: 20200401, end: 20200407
  7. FLUOROURACILE [Concomitant]
     Active Substance: FLUOROURACIL
     Dosage: UNK
     Route: 042
     Dates: start: 201612, end: 201702
  8. CYTARABINE. [Suspect]
     Active Substance: CYTARABINE
     Indication: ACUTE MYELOID LEUKAEMIA
     Dosage: UNK 200 MG/M? DE J1 A J7
     Route: 042
     Dates: start: 20200326, end: 20200401
  9. NEFOPAM HYDROCHLORIDE [Concomitant]
     Active Substance: NEFOPAM HYDROCHLORIDE
     Dosage: UNK
     Dates: start: 20200404, end: 20200409
  10. VANCOMYCINE                        /00314401/ [Concomitant]
     Active Substance: VANCOMYCIN
     Dosage: UNK
     Dates: start: 20200415, end: 20200418
  11. MIDOSTAURINE [Concomitant]
     Active Substance: MIDOSTAURIN
     Dosage: UNK
     Dates: start: 20200404, end: 20200413
  12. PROSTIGMINE                        /00045902/ [Concomitant]
     Active Substance: NEOSTIGMINE BROMIDE
     Dosage: UNK
     Dates: start: 20200425
  13. MORPHINE [Concomitant]
     Active Substance: MORPHINE
     Dosage: UNK
     Dates: start: 20200409
  14. CYTARABINE. [Concomitant]
     Active Substance: CYTARABINE
     Dosage: 40 MILLIGRAM
     Route: 037
     Dates: start: 20200421
  15. MEROPENEM ANHYDROUS [Concomitant]
     Active Substance: MEROPENEM ANHYDROUS
     Dosage: UNK
     Dates: start: 20200423, end: 20200430
  16. TAZOCILLINE [Concomitant]
     Active Substance: PIPERACILLIN SODIUM\TAZOBACTAM SODIUM
     Dosage: UNK
     Route: 042
     Dates: start: 20200323, end: 20200330
  17. FLAGYL [Concomitant]
     Active Substance: METRONIDAZOLE\METRONIDAZOLE HYDROCHLORIDE
     Dosage: UNK
     Route: 042
     Dates: start: 20200401, end: 20200407
  18. LINEZOLIDE [Concomitant]
     Active Substance: LINEZOLID
     Dosage: UNK
     Dates: start: 20200409, end: 20200412
  19. CYCLOPHOSPHAMIDE. [Concomitant]
     Active Substance: CYCLOPHOSPHAMIDE
     Dosage: UNK
     Route: 042
     Dates: start: 201612, end: 201702
  20. PACLITAXEL. [Concomitant]
     Active Substance: PACLITAXEL
     Dosage: UNK
     Route: 042
     Dates: start: 2017, end: 2017
  21. METHOTREXATE. [Suspect]
     Active Substance: METHOTREXATE
     Indication: ACUTE MYELOID LEUKAEMIA
     Dosage: 15 MILLIGRAM
     Route: 037
     Dates: start: 20200326
  22. IDARUBICIN [Suspect]
     Active Substance: IDARUBICIN
     Indication: ACUTE MYELOID LEUKAEMIA
     Dosage: 9 MILLIGRAM PER MILLILITRE, 9 MG/M? DE J1 A J5
     Route: 042
     Dates: start: 20200326, end: 20200330
  23. AMOXICILLINE                       /00249601/ [Concomitant]
     Active Substance: AMOXICILLIN
     Dosage: UNK
     Dates: start: 20200418, end: 20200423
  24. TAZOCILLINE [Concomitant]
     Active Substance: PIPERACILLIN SODIUM\TAZOBACTAM SODIUM
     Dosage: UNK
     Dates: start: 20200409, end: 20200418

REACTIONS (1)
  - Autonomic nervous system imbalance [Not Recovered/Not Resolved]

NARRATIVE: CASE EVENT DATE: 20200406
